FAERS Safety Report 6391272-5 (Version None)
Quarter: 2009Q4

REPORT INFORMATION
  Report Type: 
  Country: None (occurrence: None)
  Receive Date: 20091007
  Receipt Date: 20090928
  Transmission Date: 20100525
  Serious: Yes (Other)
  Sender: FDA-Public Use
  Company Number: US-AMGEN-US366705

PATIENT
  Sex: Male

DRUGS (1)
  1. NPLATE [Suspect]
     Indication: IDIOPATHIC THROMBOCYTOPENIC PURPURA
     Route: 058
     Dates: start: 20070101

REACTIONS (5)
  - HAEMORRHAGE [None]
  - PLATELET COUNT DECREASED [None]
  - SKIN HAEMORRHAGE [None]
  - SUTURE RELATED COMPLICATION [None]
  - TRAUMATIC HAEMATOMA [None]
